FAERS Safety Report 11904549 (Version 1)
Quarter: 2016Q1

REPORT INFORMATION
  Report Type: Spontaneous
  Country: US (occurrence: US)
  Receive Date: 20160108
  Receipt Date: 20160108
  Transmission Date: 20160526
  Serious: Yes (Other)
  Sender: FDA-Public Use
  Company Number: US-ROCHE-1601790

PATIENT
  Sex: Female

DRUGS (7)
  1. RITUXAN [Suspect]
     Active Substance: RITUXIMAB
     Dosage: 100 MG/M2 GIVEN ON DAY 2
     Route: 042
     Dates: start: 2010
  2. RITUXAN [Suspect]
     Active Substance: RITUXIMAB
     Dosage: FULL DOSE SPLIT OVER 2 DAYS
     Route: 042
     Dates: start: 2010, end: 2010
  3. RITUXAN [Suspect]
     Active Substance: RITUXIMAB
     Dosage: 150 MG/M2 GIVEN ON DAY 3
     Route: 042
     Dates: start: 2010
  4. BENDAMUSTINE [Concomitant]
     Active Substance: BENDAMUSTINE
     Indication: CHRONIC LYMPHOCYTIC LEUKAEMIA
     Route: 065
     Dates: start: 2010
  5. CYTOXAN [Concomitant]
     Active Substance: CYCLOPHOSPHAMIDE
     Indication: CHRONIC LYMPHOCYTIC LEUKAEMIA
     Route: 065
     Dates: start: 2015
  6. RITUXAN [Suspect]
     Active Substance: RITUXIMAB
     Dosage: GIVEN TWICE (OVER 2 HOURS THE SECOND TIME)
     Route: 042
     Dates: start: 201502
  7. RITUXAN [Suspect]
     Active Substance: RITUXIMAB
     Indication: CHRONIC LYMPHOCYTIC LEUKAEMIA
     Dosage: 50 MG/M2 GIVEN ON DAY 1
     Route: 042
     Dates: start: 2010

REACTIONS (4)
  - Drug ineffective [Unknown]
  - Pyrexia [Unknown]
  - Tremor [Unknown]
  - Headache [Unknown]

NARRATIVE: CASE EVENT DATE: 2010
